FAERS Safety Report 20638925 (Version 1)
Quarter: 2022Q1

REPORT INFORMATION
  Report Type: Report from Study
  Country: CA (occurrence: CA)
  Receive Date: 20220325
  Receipt Date: 20220325
  Transmission Date: 20220423
  Serious: Yes (Other)
  Sender: FDA-Public Use
  Company Number: CA-ABBVIE-22K-028-4328658-00

PATIENT
  Age: 72 Year
  Sex: Female

DRUGS (1)
  1. SKYRIZI [Suspect]
     Active Substance: RISANKIZUMAB-RZAA
     Indication: Psoriasis
     Route: 058
     Dates: start: 20191007

REACTIONS (9)
  - Metastases to spine [Unknown]
  - Metastases to pelvis [Unknown]
  - Metastases to bone [Unknown]
  - Metastases to liver [Unknown]
  - Cerebral disorder [Unknown]
  - Pulmonary embolism [Unknown]
  - Memory impairment [Unknown]
  - Psoriasis [Unknown]
  - Hepatic cancer [Unknown]

NARRATIVE: CASE EVENT DATE: 20220101
